FAERS Safety Report 6122013 (Version 1)
Quarter: 2020Q3

REPORT INFORMATION
  Report Type: Report from Study
  Country: US (occurrence: US)
  Receive Date: 20060906
  Receipt Date: 20060906
  Transmission Date: 20201104
  Serious: Yes (Death)
  Sender: FDA-Public Use
  Company Number: US-JNJFOC-20060806889

PATIENT
  Age: 68 Year
  Sex: Female
  Weight: 50 kg

DRUGS (6)
  1. PROCHLORPERAZINE. [Concomitant]
     Active Substance: PROCHLORPERAZINE
  2. DILAUDID [Concomitant]
     Active Substance: HYDROMORPHONE HYDROCHLORIDE
  3. PRINIVIL [Concomitant]
     Active Substance: LISINOPRIL
  4. TYLENOL EXTRA STRENGTH [Concomitant]
  5. TIPIFARNIB [Suspect]
     Active Substance: TIPIFARNIB
     Indication: PLASMA CELL MYELOMA
     Route: 048
  6. FENTANYL. [Suspect]
     Active Substance: FENTANYL
     Indication: PRODUCT USED FOR UNKNOWN INDICATION
     Route: 062

REACTIONS (2)
  - Subdural haemorrhage [Fatal]
  - Fall [Not Recovered/Not Resolved]

NARRATIVE: CASE EVENT DATE: 20011213
